FAERS Safety Report 17218848 (Version 2)
Quarter: 2020Q3

REPORT INFORMATION
  Report Type: Spontaneous
  Country: DE (occurrence: DE)
  Receive Date: 20191231
  Receipt Date: 20200101
  Transmission Date: 20201104
  Serious: Yes (Other)
  Sender: FDA-Public Use
  Company Number: DE-ROCHE-2460645

PATIENT

DRUGS (6)
  1. CYCLOPHOSPHAMIDE. [Suspect]
     Active Substance: CYCLOPHOSPHAMIDE
     Indication: BREAST CANCER
     Route: 065
     Dates: start: 201806, end: 201811
  2. VINORELBINE [Suspect]
     Active Substance: VINORELBINE TARTRATE
     Indication: BREAST CANCER
     Route: 065
     Dates: start: 201901
  3. IBANDRONIC ACID. [Suspect]
     Active Substance: IBANDRONIC ACID
     Route: 065
     Dates: start: 201901
  4. IBANDRONIC ACID. [Suspect]
     Active Substance: IBANDRONIC ACID
     Indication: BREAST CANCER
     Route: 065
     Dates: start: 201806, end: 201806
  5. METHOTREXATE. [Suspect]
     Active Substance: METHOTREXATE
     Indication: BREAST CANCER
     Route: 065
     Dates: start: 201806, end: 201811
  6. FLUOROURACIL. [Suspect]
     Active Substance: FLUOROURACIL
     Indication: BREAST CANCER
     Route: 065
     Dates: start: 201806, end: 201811

REACTIONS (13)
  - Malignant neoplasm progression [Unknown]
  - Breast cancer [Unknown]
  - Monocyte count decreased [Unknown]
  - Alanine aminotransferase increased [Unknown]
  - Blood glucose increased [Unknown]
  - Carbohydrate antigen 15-3 increased [Unknown]
  - Aspartate aminotransferase increased [Unknown]
  - Metastases to liver [Unknown]
  - Haematocrit decreased [Unknown]
  - Red cell distribution width increased [Unknown]
  - Lymphocyte count decreased [Unknown]
  - Red blood cell count decreased [Unknown]
  - Gamma-glutamyltransferase increased [Unknown]

NARRATIVE: CASE EVENT DATE: 20190416
